FAERS Safety Report 25699118 (Version 1)
Quarter: 2025Q3

REPORT INFORMATION
  Report Type: Report from Study
  Country: MX (occurrence: MX)
  Receive Date: 20250819
  Receipt Date: 20250819
  Transmission Date: 20251020
  Serious: Yes (Other)
  Sender: NOVARTIS
  Company Number: MX-002147023-NVSC2025MX129733

PATIENT
  Age: 44 Year
  Sex: Female
  Weight: 65 kg

DRUGS (6)
  1. KISQALI [Suspect]
     Active Substance: RIBOCICLIB SUCCINATE
     Indication: Breast cancer stage II
     Dosage: 200 MG, QMO
     Route: 048
     Dates: start: 202410
  2. KISQALI [Suspect]
     Active Substance: RIBOCICLIB SUCCINATE
     Dosage: 2 DOSAGE FORM (200 MG), QD
     Route: 048
     Dates: end: 202502
  3. KISQALI [Suspect]
     Active Substance: RIBOCICLIB SUCCINATE
     Dosage: 1 DOSAGE FORM (200 MG), QD
     Route: 048
     Dates: start: 202502
  4. FEMARA [Suspect]
     Active Substance: LETROZOLE
     Indication: Breast cancer stage II
     Dosage: 1 DOSAGE FORM (2.5 MG), QD
     Route: 048
     Dates: start: 202410
  5. GOSERELIN [Concomitant]
     Active Substance: GOSERELIN
     Indication: Hormone level abnormal
     Route: 059
     Dates: start: 202410
  6. LEVOTHYROXINE [Concomitant]
     Active Substance: LEVOTHYROXINE
     Indication: Hypothyroidism
     Dosage: 1 DOSAGE FORM (50 MCG) (TABLETS), QD
     Route: 048
     Dates: start: 2020

REACTIONS (2)
  - Leukopenia [Recovered/Resolved]
  - Neutropenia [Recovered/Resolved]

NARRATIVE: CASE EVENT DATE: 20250201
